FAERS Safety Report 12439168 (Version 2)
Quarter: 2018Q3

REPORT INFORMATION
  Report Type: Spontaneous
  Country: US (occurrence: US)
  Receive Date: 20160606
  Receipt Date: 20180723
  Transmission Date: 20181010
  Serious: No
  Sender: FDA-Public Use
  Company Number: US-PFIZER INC-2016261451

PATIENT
  Age: 2 Year
  Sex: Male
  Weight: 16 kg

DRUGS (3)
  1. GENOTROPIN MQ [Suspect]
     Active Substance: SOMATROPIN
     Dosage: 0.8 MG, ALTERNATE DAY(0.6MG AND 0.8MG MINIQUICK ALT DAILY)
     Dates: start: 20160214
  2. GENOTROPIN MQ [Suspect]
     Active Substance: SOMATROPIN
     Indication: CONGENITAL ANOMALY
     Dosage: 0.6 MG, ALTERNATE DAY(0.6MG AND 0.8MG MINIQUICK ALT DAILY)
     Dates: start: 20160214
  3. GENOTROPIN MQ [Suspect]
     Active Substance: SOMATROPIN
     Indication: BODY HEIGHT BELOW NORMAL
     Dosage: 0.4 MG, DAILY
     Dates: start: 201602

REACTIONS (4)
  - Eye pruritus [Not Recovered/Not Resolved]
  - Sleep apnoea syndrome [Unknown]
  - Drug dose omission [Unknown]
  - Nasal pruritus [Not Recovered/Not Resolved]
